FAERS Safety Report 17986282 (Version 1)
Quarter: 2020Q3

REPORT INFORMATION
  Report Type: Spontaneous
  Country: ES (occurrence: ES)
  Receive Date: 20200706
  Receipt Date: 20200706
  Transmission Date: 20201103
  Serious: Yes (Other)
  Sender: FDA-Public Use
  Company Number: PT-SUNOVION-2020SUN001973

PATIENT

DRUGS (3)
  1. ZEBINIX [Suspect]
     Active Substance: ESLICARBAZEPINE ACETATE
     Dosage: 800 MILLIGRAM, 1X / DAY, AT NIGHT
     Route: 048
  2. ZEBINIX [Suspect]
     Active Substance: ESLICARBAZEPINE ACETATE
     Indication: PARTIAL SEIZURES
     Dosage: 800 MILLIGRAM, 1X / DAY AT NIGHT
     Route: 065
  3. ZEBINIX [Suspect]
     Active Substance: ESLICARBAZEPINE ACETATE
     Indication: SIMPLE PARTIAL SEIZURES
     Dosage: 400 MILLIGRAM, 1X / DAY AT NIGHT

REACTIONS (7)
  - Tension headache [Recovered/Resolved]
  - Nasal pruritus [Recovered/Resolved]
  - Social fear [Recovered/Resolved]
  - Dysphoria [Recovered/Resolved]
  - Therapy interrupted [Unknown]
  - Psychotic symptom [Recovered/Resolved]
  - Hypertensive crisis [Recovered/Resolved]
